FAERS Safety Report 10693221 (Version 1)
Quarter: 2015Q1

REPORT INFORMATION
  Report Type: Spontaneous
  Country: US (occurrence: US)
  Receive Date: 20150106
  Receipt Date: 20150106
  Transmission Date: 20150720
  Serious: No
  Sender: FDA-Public Use
  Company Number: US-BAYER-2015-001421

PATIENT
  Age: 25 Year

DRUGS (1)
  1. MAGNEVIST [Suspect]
     Active Substance: GADOPENTETATE DIMEGLUMINE
     Dosage: 15 ML, ONCE
     Dates: start: 20141217

REACTIONS (1)
  - Urticaria [None]

NARRATIVE: CASE EVENT DATE: 20141217
